FAERS Safety Report 23298162 (Version 2)
Quarter: 2023Q4

REPORT INFORMATION
  Report Type: Spontaneous
  Country: DE (occurrence: DE)
  Receive Date: 20231214
  Receipt Date: 20231227
  Transmission Date: 20240109
  Serious: Yes (Other)
  Sender: FDA-Public Use
  Company Number: DE-LESVI-2023005950

PATIENT
  Sex: Female

DRUGS (4)
  1. PREGABALIN [Suspect]
     Active Substance: PREGABALIN
     Indication: Neuralgia
     Dosage: 150 MILLIGRAM,Q2D,(ABOUT 4 MONTHS AGO)
     Route: 065
  2. PREGABALIN [Suspect]
     Active Substance: PREGABALIN
     Dosage: 100 MILLIGRAM,Q2D,(RECENTLY ONGOING)
     Route: 065
     Dates: end: 20231122
  3. OXYCODONE [Concomitant]
     Active Substance: OXYCODONE
     Indication: Neuralgia
     Dosage: 10 MG, BEFORE USING PREGABALIN, ONGOING
     Route: 065
  4. TILIDINE [Concomitant]
     Active Substance: TILIDINE
     Indication: Neuralgia
     Dosage: BEFORE USING PREGABALIN
     Route: 065

REACTIONS (14)
  - Respiratory depression [Not Recovered/Not Resolved]
  - Abdominal pain upper [Not Recovered/Not Resolved]
  - Muscle atrophy [Unknown]
  - Pleural effusion [Unknown]
  - Skin reaction [Not Recovered/Not Resolved]
  - Reflux gastritis [Not Recovered/Not Resolved]
  - Hypoaesthesia [Not Recovered/Not Resolved]
  - Dyspnoea [Not Recovered/Not Resolved]
  - Back pain [Not Recovered/Not Resolved]
  - Pain [Not Recovered/Not Resolved]
  - Muscle spasms [Unknown]
  - Dysphagia [Unknown]
  - Depression [Unknown]
  - Headache [Unknown]
